FAERS Safety Report 8249924-8 (Version None)
Quarter: 2012Q1

REPORT INFORMATION
  Report Type: 
  Country: None (occurrence: None)
  Receive Date: 20120328
  Receipt Date: 20120326
  Transmission Date: 20120608
  Serious: Yes (Death)
  Sender: FDA-Public Use
  Company Number: ADR-2011-11457

PATIENT
  Age: 17 Year
  Sex: Female

DRUGS (2)
  1. LIORESAL [Suspect]
     Indication: MUSCLE SPASTICITY
     Dosage: 285 MCG, DAILY, INTRATHECAL
     Route: 037
  2. LIORESAL [Suspect]
     Indication: CEREBRAL PALSY
     Dosage: 285 MCG, DAILY, INTRATHECAL
     Route: 037

REACTIONS (1)
  - PROCEDURAL COMPLICATION [None]
